FAERS Safety Report 8217450-8 (Version None)
Quarter: 2012Q1

REPORT INFORMATION
  Report Type: 
  Country: None (occurrence: None)
  Receive Date: 20120306
  Receipt Date: 20111017
  Transmission Date: 20120608
  Serious: Yes (Other)
  Sender: FDA-Public Use
  Company Number: LIP 11014

PATIENT
  Age: 70 Year
  Sex: Female

DRUGS (2)
  1. LIPOFEN [Suspect]
     Indication: BLOOD CHOLESTEROL
     Dosage: 150MG/DAILY/PO
     Route: 048
     Dates: start: 20111012
  2. INFLUENZA VACCINE [Suspect]
     Indication: PROPHYLAXIS
     Dates: start: 20111012

REACTIONS (2)
  - SWOLLEN TONGUE [None]
  - DYSPNOEA [None]
